FAERS Safety Report 24175048 (Version 1)
Quarter: 2024Q3

REPORT INFORMATION
  Report Type: Report from Study
  Country: US (occurrence: US)
  Receive Date: 20240805
  Receipt Date: 20240805
  Transmission Date: 20241016
  Serious: Yes (Other)
  Sender: GILEAD
  Company Number: US-GILEAD-2024-0682838

PATIENT
  Sex: Female

DRUGS (1)
  1. AZTREONAM LYSINE [Suspect]
     Active Substance: AZTREONAM LYSINE
     Indication: Cystic fibrosis
     Dosage: 1 VIAL (75 MG) VIA ALTERA NEBULIZER IN THE MORNING, AT NOON AND AT BEDTIME FOR 28 DAY CYCLE ROTATING
     Route: 055

REACTIONS (2)
  - Pseudomonas infection [Unknown]
  - Off label use [Not Recovered/Not Resolved]
